FAERS Safety Report 8244043-9 (Version None)
Quarter: 2012Q1

REPORT INFORMATION
  Report Type: 
  Country: None (occurrence: None)
  Receive Date: 20120329
  Receipt Date: 20120314
  Transmission Date: 20120608
  Serious: Yes (Hospitalization)
  Sender: FDA-Public Use
  Company Number: JP-WATSON-2012-04726

PATIENT
  Age: 66 Year
  Sex: Male

DRUGS (4)
  1. AMIODARONE HCL [Suspect]
     Dosage: 200 MG, DAILY
     Route: 065
  2. METHYL-DIGOXIN [Suspect]
     Indication: PRODUCT USED FOR UNKNOWN INDICATION
     Dosage: 0.1 MG, DAILY
     Route: 065
  3. AMIODARONE HCL [Suspect]
     Indication: ATRIAL FIBRILLATION
     Dosage: 100 MG, DAILY
  4. CARVEDILOL [Suspect]
     Indication: ATRIAL FIBRILLATION
     Dosage: 2.5 MG, DAILY
     Route: 065

REACTIONS (6)
  - ATRIOVENTRICULAR BLOCK COMPLETE [None]
  - BRADYCARDIA [None]
  - DRUG INTERACTION [None]
  - TORSADE DE POINTES [None]
  - ATRIAL FIBRILLATION [None]
  - ELECTROCARDIOGRAM QT PROLONGED [None]
